FAERS Safety Report 19230243 (Version 5)
Quarter: 2021Q3

REPORT INFORMATION
  Report Type: Report from Study
  Country: US (occurrence: US)
  Receive Date: 20210506
  Receipt Date: 20210922
  Transmission Date: 20211014
  Serious: No
  Sender: FDA-Public Use
  Company Number: US-SA-2021SA146499

PATIENT
  Age: 19 Year
  Sex: Male

DRUGS (12)
  1. DUPILUMAB [Suspect]
     Active Substance: DUPILUMAB
     Indication: DERMATITIS ATOPIC
     Dosage: 600 MG, 1X
     Route: 058
     Dates: start: 20210407, end: 20210407
  2. MONTELUKAST [Concomitant]
     Active Substance: MONTELUKAST SODIUM
  3. MONTELUKAST [Concomitant]
     Active Substance: MONTELUKAST SODIUM
  4. VITAMIN D NOS [Concomitant]
     Active Substance: VITAMIN D NOS
  5. CEPHALEXINE [Concomitant]
     Active Substance: CEPHALEXIN
  6. FAMOTIDINE. [Concomitant]
     Active Substance: FAMOTIDINE
  7. VITAMIN D NOS [Concomitant]
     Active Substance: VITAMIN D NOS
  8. DUPILUMAB [Suspect]
     Active Substance: DUPILUMAB
     Dosage: 300 MG, QOW
     Route: 058
     Dates: start: 2021
  9. EPINEPHRINE. [Concomitant]
     Active Substance: EPINEPHRINE
  10. TRAZODONE [Concomitant]
     Active Substance: TRAZODONE HYDROCHLORIDE
  11. DOXEPIN [Concomitant]
     Active Substance: DOXEPIN
  12. ALCLOMETASONE [Concomitant]
     Active Substance: ALCLOMETASONE

REACTIONS (6)
  - Dermatitis atopic [Unknown]
  - Rhinorrhoea [Not Recovered/Not Resolved]
  - Dry eye [Unknown]
  - Nasal congestion [Unknown]
  - Therapeutic response shortened [Not Recovered/Not Resolved]
  - Pruritus [Not Recovered/Not Resolved]

NARRATIVE: CASE EVENT DATE: 2021
